FAERS Safety Report 6818458-7 (Version None)
Quarter: 2010Q3

REPORT INFORMATION
  Report Type: 
  Country: None (occurrence: None)
  Receive Date: 20100706
  Receipt Date: 20080521
  Transmission Date: 20110219
  Serious: No
  Sender: FDA-Public Use
  Company Number: US-PFIZER INC-2008041521

PATIENT
  Sex: Male
  Weight: 90.72 kg

DRUGS (3)
  1. ZITHROMAX [Suspect]
     Indication: PROSTATITIS
  2. TAMSULOSIN HYDROCHLORIDE [Concomitant]
  3. LOVASTATIN [Concomitant]

REACTIONS (2)
  - DRUG INEFFECTIVE [None]
  - URINARY TRACT INFECTION PSEUDOMONAL [None]
